FAERS Safety Report 8502068-X (Version None)
Quarter: 2012Q2

REPORT INFORMATION
  Report Type: 
  Country: None (occurrence: None)
  Receive Date: 20120405
  Receipt Date: 20100809
  Transmission Date: 20120825
  Serious: Yes (Other)
  Sender: FDA-Public Use
  Company Number: PHHY2010US44551

PATIENT
  Age: 84 Year
  Sex: Female

DRUGS (7)
  1. ASPIRIN [Concomitant]
  2. LATANOPROST [Concomitant]
  3. MULTIVITAMINS (ASCORBIC ACID, ERGOCALCIFEROL, FOLIC ACID, NICOTINAMIDE [Concomitant]
  4. FLUTICASONE PROPIONATE [Concomitant]
  5. OXYBUTYNIN CHLORIDE (OXYBUTYNIN HYDROCHLORIDE) [Concomitant]
  6. RECLAST [Suspect]
     Indication: OSTEOPOROSIS
     Dosage: 5 MG ONCE YEAR, INTRAVENOUS
     Route: 042
     Dates: start: 20100525
  7. CARTEOLOL HYDROCHLORIDE [Concomitant]

REACTIONS (2)
  - BONE PAIN [None]
  - PAIN [None]
